FAERS Safety Report 24758679 (Version 1)
Quarter: 2024Q4

REPORT INFORMATION
  Report Type: Spontaneous
  Country: US (occurrence: None)
  Receive Date: 20241219
  Receipt Date: 20241219
  Transmission Date: 20250115
  Serious: Yes (Hospitalization)
  Sender: Public
  Company Number: None

PATIENT
  Sex: Female

DRUGS (2)
  1. PROLIA [Suspect]
     Active Substance: DENOSUMAB
     Indication: Abdominal pain
     Dosage: OTHER FREQUENCY : EVERY6MONTHS;?
     Route: 042
     Dates: start: 202305
  2. PROLIA [Suspect]
     Active Substance: DENOSUMAB
     Indication: Diarrhoea

REACTIONS (1)
  - Colitis [None]
